FAERS Safety Report 9587451 (Version 1)
Quarter: 2013Q4

REPORT INFORMATION
  Report Type: Report from Study
  Country: FR (occurrence: FR)
  Receive Date: 20131003
  Receipt Date: 20131003
  Transmission Date: 20140711
  Serious: Yes (Death, Other)
  Sender: FDA-Public Use
  Company Number: PHHY2013FR110081

PATIENT
  Sex: 0

DRUGS (8)
  1. AMN107 [Suspect]
     Indication: CHRONIC MYELOID LEUKAEMIA
     Dosage: 300 MG, BID
     Route: 048
     Dates: start: 20100723
  2. FLUINDIONE [Concomitant]
     Dosage: UNK
     Route: 048
     Dates: start: 20121226
  3. ACEBUTOLOL [Concomitant]
     Dosage: UNK
     Route: 048
     Dates: start: 20130115
  4. RAMIPRIL [Concomitant]
     Dosage: UNK
     Route: 048
  5. ATORVASTATIN [Concomitant]
     Route: 048
  6. MOLSIDOMINE [Concomitant]
  7. AMLODIPINE [Concomitant]
  8. KARDEGIC [Concomitant]

REACTIONS (2)
  - Atrial fibrillation [Not Recovered/Not Resolved]
  - Sudden death [Fatal]
